FAERS Safety Report 5036401-0 (Version None)
Quarter: 2006Q2

REPORT INFORMATION
  Report Type: 
  Country: None (occurrence: None)
  Receive Date: 20060601
  Receipt Date: 20060412
  Transmission Date: 20061013
  Serious: No
  Sender: FDA-Public Use
  Company Number: US200604002143

PATIENT
  Age: 25 Year
  Sex: Male

DRUGS (4)
  1. CYMBALTA [Suspect]
     Indication: PAIN
     Dosage: 60 MG
     Dates: start: 20060405, end: 20060405
  2. OXYCONTIN [Concomitant]
  3. PERCOCET [Concomitant]
  4. VALIUM /NET/(DIAZEPAM) [Concomitant]

REACTIONS (4)
  - CONTUSION [None]
  - ECCHYMOSIS [None]
  - FEELING JITTERY [None]
  - TRISMUS [None]
